FAERS Safety Report 8604791-5 (Version None)
Quarter: 2012Q3

REPORT INFORMATION
  Report Type: 
  Country: None (occurrence: None)
  Receive Date: 20120820
  Receipt Date: 20120810
  Transmission Date: 20120928
  Serious: Yes (Other)
  Sender: FDA-Public Use
  Company Number: ES-ELI_LILLY_AND_COMPANY-ES201204008481

PATIENT
  Sex: Female

DRUGS (1)
  1. FORTEO [Suspect]
     Dosage: UNK, UNKNOWN
     Route: 065

REACTIONS (9)
  - BILIARY COLIC [None]
  - ALOPECIA [None]
  - HYPERHIDROSIS [None]
  - DEPRESSED MOOD [None]
  - WEIGHT DECREASED [None]
  - TRANSAMINASES INCREASED [None]
  - CHRONIC HEPATITIS [None]
  - AMNESIA [None]
  - LISTLESS [None]
